FAERS Safety Report 26168186 (Version 1)
Quarter: 2025Q4

REPORT INFORMATION
  Report Type: Spontaneous
  Country: US (occurrence: US)
  Receive Date: 20251217
  Receipt Date: 20251217
  Transmission Date: 20260119
  Serious: No
  Sender: PACIRA
  Company Number: US-ORG100016242-2025000038

PATIENT
  Age: 64 Year
  Sex: Female

DRUGS (2)
  1. EXPAREL [Suspect]
     Active Substance: BUPIVACAINE
     Indication: Coronary artery bypass
     Dosage: 266 MG
     Route: 065
  2. LIDOCAINE PATCH [Suspect]
     Active Substance: LIDOCAINE
     Indication: Coronary artery bypass
     Dosage: ON STERNUM
     Route: 065

REACTIONS (1)
  - Labelled drug-drug interaction medication error [Unknown]
